FAERS Safety Report 10250892 (Version 1)
Quarter: 2014Q2

REPORT INFORMATION
  Report Type: Report from Study
  Country: GB (occurrence: GB)
  Receive Date: 20140620
  Receipt Date: 20140620
  Transmission Date: 20141212
  Serious: Yes (Life-Threatening)
  Sender: FDA-Public Use
  Company Number: PHHY2014GB072067

PATIENT
  Age: 69 Year
  Sex: Male

DRUGS (7)
  1. CISPLATIN [Suspect]
     Indication: GASTRIC CANCER
     Dosage: AST DOSE PRIOR TO SAE: 115 MG, 03/JUL/2013
     Route: 042
     Dates: start: 20130521
  2. EPIRUBICIN [Suspect]
     Indication: GASTRIC CANCER
     Dosage: LAST DOSE PRIOR TO SAE: 95 MG, 03/JUL/2013
     Route: 042
     Dates: start: 20130521
  3. AVASTIN [Suspect]
     Indication: GASTRIC CANCER
     Dosage: LAST DOSE PRIOR TO SAE: 600 MG, 03/JUL/2013
     Route: 042
     Dates: start: 20130521
  4. XELODA [Suspect]
     Indication: GASTRIC CANCER
     Dosage: LAST DOSE PRIOR TO SAE: 52500 MG, 03/JUL/2013
     Route: 048
     Dates: start: 20130521
  5. AMLODIPINE [Concomitant]
     Route: 048
  6. BENDROFLUAZIDE [Concomitant]
     Route: 048
  7. SIMVASTATIN [Concomitant]
     Route: 048

REACTIONS (1)
  - Hypokalaemia [Recovered/Resolved]
